FAERS Safety Report 9548237 (Version 1)
Quarter: 2013Q2

REPORT INFORMATION
  Report Type: Spontaneous
  Country: US (occurrence: None)
  Receive Date: 20130524
  Receipt Date: 20130524
  Transmission Date: 20140414
  Serious: No
  Sender: FDA-Public Use
  Company Number: PHEH2013US004908

PATIENT
  Age: 38 Year
  Sex: Female

DRUGS (1)
  1. GILENYA (FINGOLIMOD) CAPSULE [Suspect]
     Indication: MULTIPLE SCLEROSIS
     Dosage: UNK UKN, UNK, ORAL
     Dates: start: 20121215

REACTIONS (2)
  - Paraesthesia [None]
  - Inappropriate schedule of drug administration [None]
